FAERS Safety Report 5610085-2 (Version None)
Quarter: 2008Q1

REPORT INFORMATION
  Report Type: 
  Country: None (occurrence: None)
  Receive Date: 20080131
  Receipt Date: 20080122
  Transmission Date: 20080703
  Serious: Yes (Other)
  Sender: FDA-Public Use
  Company Number: US-PFIZER INC-2008009042

PATIENT
  Sex: Female
  Weight: 49.545 kg

DRUGS (3)
  1. CHANTIX [Suspect]
     Indication: SMOKING CESSATION THERAPY
     Route: 048
     Dates: start: 20080117, end: 20080120
  2. XANAX [Concomitant]
  3. DELESTROGEN [Concomitant]

REACTIONS (5)
  - AMNESIA [None]
  - BIPOLAR DISORDER [None]
  - CRYING [None]
  - SCREAMING [None]
  - SOMNAMBULISM [None]
